FAERS Safety Report 5148133-9 (Version None)
Quarter: 2006Q4

REPORT INFORMATION
  Report Type: 
  Country: None (occurrence: None)
  Receive Date: 20061110
  Receipt Date: 20061101
  Transmission Date: 20070319
  Serious: Yes (Death, Hospitalization)
  Sender: FDA-Public Use
  Company Number: FR-ROCHE-469536

PATIENT
  Age: 65 Year
  Sex: Female

DRUGS (2)
  1. CAPECITABINE [Suspect]
     Indication: BREAST CANCER
     Dosage: GIVEN ON DAYS 1-14 EVERY THREE WEEKS.
     Route: 048
     Dates: start: 20031023
  2. IXABEPILONE [Suspect]
     Indication: BREAST CANCER
     Dosage: GIVEN ON DAY ONE.
     Route: 042
     Dates: start: 20031023

REACTIONS (7)
  - ASTHENIA [None]
  - BRONCHIAL OBSTRUCTION [None]
  - CARDIO-RESPIRATORY ARREST [None]
  - DYSAESTHESIA [None]
  - LEUKOPENIA [None]
  - RESPIRATORY TRACT INFECTION [None]
  - SOMNOLENCE [None]
